FAERS Safety Report 18227550 (Version 5)
Quarter: 2024Q4

REPORT INFORMATION
  Report Type: Other
  Country: IT (occurrence: IT)
  Receive Date: 20200903
  Receipt Date: 20241115
  Transmission Date: 20250115
  Serious: Yes (Hospitalization, Other)
  Sender: MACLEODS
  Company Number: None

PATIENT

DRUGS (12)
  1. PANTOPRAZOLE [Suspect]
     Active Substance: PANTOPRAZOLE
     Indication: Product used for unknown indication
     Dosage: 2 DOSAGE FORM, SINGLE, MEDICATION ERROR
     Route: 065
     Dates: start: 20200707, end: 20200707
  2. DUTASTERIDE [Suspect]
     Active Substance: DUTASTERIDE
     Indication: Product used for unknown indication
     Dosage: 7.5 MILLIGRAM, SINGLE, MEDICATION ERROR
     Route: 065
     Dates: start: 20200707, end: 20200707
  3. OXYBUTYNIN CHLORIDE [Suspect]
     Active Substance: OXYBUTYNIN CHLORIDE
     Indication: Product used for unknown indication
     Dosage: 45 MILLIGRAM, SINGLE, MEDICATION ERROR
     Route: 048
     Dates: start: 20200707, end: 20200707
  4. OXYBUTYNIN CHLORIDE [Suspect]
     Active Substance: OXYBUTYNIN CHLORIDE
     Dosage: 45 MILLIGRAM, SINGLE, MEDICATION ERROR
     Route: 048
     Dates: start: 20200707, end: 20200707
  5. LEVOSULPIRIDE [Suspect]
     Active Substance: LEVOSULPIRIDE
     Indication: Product used for unknown indication
     Dosage: 50 MILLIGRAM, SINGLE
     Route: 065
     Dates: start: 20200707, end: 20200707
  6. LEVOSULPIRIDE [Suspect]
     Active Substance: LEVOSULPIRIDE
     Dosage: UNK
     Route: 065
  7. RIVAROXABAN [Suspect]
     Active Substance: RIVAROXABAN
     Indication: Product used for unknown indication
     Dosage: 45 MILLIGRAM, SINGLE, MEDICATION ERROR
     Route: 065
     Dates: start: 20200707, end: 20200707
  8. ALFUZOSIN HYDROCHLORIDE [Suspect]
     Active Substance: ALFUZOSIN HYDROCHLORIDE
     Indication: Product used for unknown indication
     Dosage: 60 MILLIGRAM, SINGLE, MEDICATION ERROR
     Route: 048
     Dates: start: 20200707, end: 20200707
  9. FUROSEMIDE [Suspect]
     Active Substance: FUROSEMIDE
     Indication: Product used for unknown indication
     Dosage: 50 MILLIGRAM, SINGLE, MEDICATION ERROR
     Route: 065
     Dates: start: 20200707, end: 20200707
  10. FUROSEMIDE [Suspect]
     Active Substance: FUROSEMIDE
     Dosage: UNK
     Route: 065
  11. LEUCOVORIN CALCIUM [Suspect]
     Active Substance: LEUCOVORIN CALCIUM
     Indication: Product used for unknown indication
     Dosage: 45 MILLIGRAM, SINGLE, MEDICATION ERROR (15)
     Route: 065
     Dates: start: 20200707, end: 20200707
  12. LEUCOVORIN CALCIUM [Suspect]
     Active Substance: LEUCOVORIN CALCIUM
     Dosage: UNK
     Route: 065

REACTIONS (3)
  - Disorganised speech [Not Recovered/Not Resolved]
  - Drug abuse [Not Recovered/Not Resolved]
  - Intentional overdose [Not Recovered/Not Resolved]

NARRATIVE: CASE EVENT DATE: 20200707
